FAERS Safety Report 5480865-5 (Version None)
Quarter: 2007Q4

REPORT INFORMATION
  Report Type: 
  Country: None (occurrence: None)
  Receive Date: 20071009
  Receipt Date: 20070927
  Transmission Date: 20080405
  Serious: Yes (Disabling, Other)
  Sender: FDA-Public Use
  Company Number: FR-GILEAD-2007-0013587

PATIENT
  Sex: Male

DRUGS (20)
  1. VIREAD [Suspect]
     Indication: HIV INFECTION
     Route: 048
     Dates: start: 20020318
  2. VIREAD [Suspect]
     Dates: start: 20060623
  3. RETROVIR [Suspect]
     Dates: start: 19920101, end: 19970101
  4. RETROVIR [Suspect]
     Dates: start: 20050617
  5. BACTRIM [Suspect]
     Dates: start: 19981027
  6. COMBIVIR [Suspect]
     Indication: HIV INFECTION
     Route: 048
     Dates: start: 20000901, end: 20060623
  7. NORVIR [Suspect]
     Indication: HIV INFECTION
     Route: 048
     Dates: start: 19990921
  8. NORVIR [Suspect]
     Route: 048
     Dates: start: 20040417
  9. TELZIR [Suspect]
     Indication: HIV INFECTION
     Route: 048
     Dates: start: 20050329, end: 20060623
  10. BACTRIM DS [Suspect]
     Dates: start: 20020318
  11. NEURONTIN [Suspect]
     Indication: TRIGEMINAL NEURALGIA
     Dates: start: 20060101, end: 20060720
  12. LYRICA [Suspect]
     Indication: TRIGEMINAL NEURALGIA
     Dates: start: 20060601, end: 20060720
  13. INVIRASE [Concomitant]
     Indication: HIV INFECTION
     Route: 048
     Dates: start: 19970319
  14. INVIRASE [Concomitant]
     Route: 048
     Dates: start: 20060623
  15. KALETRA [Concomitant]
     Dates: start: 20030103
  16. FUZEON [Concomitant]
     Dates: start: 20030912
  17. REYATAZ [Concomitant]
     Dates: start: 20040417
  18. ZIAGEN [Concomitant]
     Dates: start: 20041015
  19. TERCIAN [Concomitant]
     Dates: start: 20041015
  20. LAROXYL [Concomitant]
     Dates: start: 20041015

REACTIONS (6)
  - ENCEPHALOPATHY [None]
  - GLAUCOMA [None]
  - MONONEUROPATHY MULTIPLEX [None]
  - OPTIC NEURITIS RETROBULBAR [None]
  - OPTIC NEUROPATHY [None]
  - TRIGEMINAL NEURALGIA [None]
